FAERS Safety Report 4494245-2 (Version None)
Quarter: 2004Q4

REPORT INFORMATION
  Report Type: 
  Country: None (occurrence: None)
  Receive Date: 20041104
  Receipt Date: 20041104
  Transmission Date: 20050328
  Serious: Yes (Life-Threatening, Disabling)
  Sender: FDA-Public Use
  Company Number: None

PATIENT
  Age: 57 Year
  Sex: Male
  Weight: 83 kg

DRUGS (1)
  1. METHOTREXATE [Suspect]
     Indication: PSORIASIS
     Dosage: 12.5-17.5 MG PER WEEK ORAL
     Route: 048
     Dates: start: 19970103, end: 20030228

REACTIONS (2)
  - HEPATIC CIRRHOSIS [None]
  - LIVER DISORDER [None]
